FAERS Safety Report 17145979 (Version 1)
Quarter: 2019Q4

REPORT INFORMATION
  Report Type: Report from Study
  Country: CA (occurrence: CA)
  Receive Date: 20191212
  Receipt Date: 20191212
  Transmission Date: 20200122
  Serious: Yes (Death, Hospitalization)
  Sender: FDA-Public Use
  Company Number: CA-ASTRAZENECA-2019SF61516

PATIENT
  Age: 25552 Day
  Sex: Female

DRUGS (1)
  1. IMFINZI [Suspect]
     Active Substance: DURVALUMAB
     Route: 041
     Dates: start: 20190926

REACTIONS (3)
  - Dyspnoea [Unknown]
  - Death [Fatal]
  - Oesophageal disorder [Unknown]

NARRATIVE: CASE EVENT DATE: 20191122
